FAERS Safety Report 6381860-4 (Version None)
Quarter: 2009Q3

REPORT INFORMATION
  Report Type: 
  Country: None (occurrence: None)
  Receive Date: 20090930
  Receipt Date: 20090922
  Transmission Date: 20100115
  Serious: Yes (Other)
  Sender: FDA-Public Use
  Company Number: BR-JNJFOC-20090907240

PATIENT
  Age: 26 Year
  Sex: Female
  Weight: 80 kg

DRUGS (1)
  1. ORTHO EVRA [Suspect]
     Indication: CONTRACEPTION
     Dosage: NORELGESTROMIN 6MG/ETHINYL ESTRADIOL 0.6 MG
     Route: 062

REACTIONS (8)
  - BREAST PAIN [None]
  - BREAST SWELLING [None]
  - CERVIX DISORDER [None]
  - GASTRIC ULCER [None]
  - OFF LABEL USE [None]
  - PRODUCT QUALITY ISSUE [None]
  - UTERINE SPASM [None]
  - WRONG TECHNIQUE IN DRUG USAGE PROCESS [None]
